FAERS Safety Report 5693890-6 (Version None)
Quarter: 2008Q2

REPORT INFORMATION
  Report Type: 
  Country: None (occurrence: None)
  Receive Date: 20080403
  Receipt Date: 20080331
  Transmission Date: 20081010
  Serious: Yes (Other)
  Sender: FDA-Public Use
  Company Number: US-ALLERGAN-0802132US

PATIENT
  Sex: Female
  Weight: 57.143 kg

DRUGS (10)
  1. BOTOX COSMETIC [Suspect]
     Indication: SKIN WRINKLING
     Dosage: 68 UNITS, SINGLE
     Route: 030
     Dates: start: 20080220, end: 20080220
  2. BOTOX COSMETIC [Suspect]
     Dates: start: 20060308, end: 20060308
  3. BOTOX COSMETIC [Suspect]
     Dates: start: 20060713, end: 20060713
  4. BOTOX COSMETIC [Suspect]
     Dates: start: 20061025, end: 20061025
  5. BOTOX COSMETIC [Suspect]
     Dates: start: 20070314, end: 20070314
  6. BOTOX COSMETIC [Suspect]
     Dates: start: 20070905, end: 20070905
  7. BOTOX COSMETIC [Suspect]
     Dosage: 68 UNITS, SINGLE
     Route: 030
     Dates: start: 20080220, end: 20080220
  8. JUVEDERM [Suspect]
     Indication: SKIN WRINKLING
     Dosage: UNK, UNK
     Route: 023
     Dates: start: 20080220, end: 20080220
  9. CELEXA [Concomitant]
     Indication: ANXIETY
  10. CELEXA [Concomitant]
     Indication: DEPRESSION

REACTIONS (5)
  - DYSPNOEA [None]
  - EYE PAIN [None]
  - HEART RATE INCREASED [None]
  - MIGRAINE [None]
  - SWELLING FACE [None]
